FAERS Safety Report 14478277 (Version 1)
Quarter: 2018Q1

REPORT INFORMATION
  Report Type: Spontaneous
  Country: FR (occurrence: US)
  Receive Date: 20180202
  Receipt Date: 20180202
  Transmission Date: 20180509
  Serious: Yes (Hospitalization)
  Sender: FDA-Public Use
  Company Number: US-TEVA-2018-US-855657

PATIENT
  Sex: Female

DRUGS (2)
  1. PROGLYCEM SUSPENSION [Suspect]
     Active Substance: DIAZOXIDE
     Dosage: 2.1 MILLIGRAM DAILY;
     Route: 048
     Dates: start: 201709
  2. PROGLYCEM SUSPENSION [Suspect]
     Active Substance: DIAZOXIDE
     Dosage: 1.8 MILLIGRAM DAILY;
     Route: 048
     Dates: start: 20170426

REACTIONS (1)
  - Pericardial effusion [Unknown]

NARRATIVE: CASE EVENT DATE: 20180105
